FAERS Safety Report 16235494 (Version 2)
Quarter: 2019Q3

REPORT INFORMATION
  Report Type: Report from Study
  Country: US (occurrence: US)
  Receive Date: 20190424
  Receipt Date: 20190703
  Transmission Date: 20191004
  Serious: No
  Sender: FDA-Public Use
  Company Number: PHEH2019US017193

PATIENT
  Age: 26 Year
  Sex: Female

DRUGS (2)
  1. GILENYA [Suspect]
     Active Substance: FINGOLIMOD HYDROCHLORIDE
     Indication: MULTIPLE SCLEROSIS
     Dosage: 0.5 MG, QD
     Route: 048
     Dates: start: 20181001
  2. CANNABIDIOL [Concomitant]
     Active Substance: CANNABIDIOL
     Indication: DEPRESSED MOOD
     Route: 065

REACTIONS (3)
  - Vision blurred [Recovered/Resolved]
  - Crying [Unknown]
  - Weight loss poor [Unknown]

NARRATIVE: CASE EVENT DATE: 20190101
